FAERS Safety Report 4588954-4 (Version None)
Quarter: 2005Q1

REPORT INFORMATION
  Report Type: 
  Country: None (occurrence: None)
  Receive Date: 20050216
  Receipt Date: 20050201
  Transmission Date: 20050727
  Serious: Yes (Other)
  Sender: FDA-Public Use
  Company Number: US_0502111608

PATIENT
  Age: 60 Year
  Sex: Male

DRUGS (3)
  1. GEMZAR [Suspect]
     Indication: METASTATIC CARCINOMA OF THE BLADDER
     Dates: start: 19970401
  2. CISPLATIN [Concomitant]
  3. RADIATION THERAPY [Concomitant]

REACTIONS (7)
  - MUSCLE ATROPHY [None]
  - MYOSITIS [None]
  - OEDEMA [None]
  - PAIN [None]
  - RADIATION INJURY [None]
  - SENSORY DISTURBANCE [None]
  - SKIN DISORDER [None]
